FAERS Safety Report 10975476 (Version 1)
Quarter: 2015Q2

REPORT INFORMATION
  Report Type: Report from Study
  Country: FI (occurrence: FI)
  Receive Date: 20150401
  Receipt Date: 20150401
  Transmission Date: 20150821
  Serious: Yes (Hospitalization, Other)
  Sender: FDA-Public Use
  Company Number: FI-BRISTOL-MYERS SQUIBB COMPANY-20565669

PATIENT
  Age: 75 Year
  Sex: Male
  Weight: 73.5 kg

DRUGS (7)
  1. CALCIUM [Concomitant]
     Active Substance: CALCIUM
  2. ENOXAPARIN [Concomitant]
     Active Substance: ENOXAPARIN
  3. METHYLPREDNISOLONE. [Concomitant]
     Active Substance: METHYLPREDNISOLONE
  4. CEFUROXIME. [Concomitant]
     Active Substance: CEFUROXIME
  5. MAGNESIUM [Concomitant]
     Active Substance: MAGNESIUM
  6. FURESIS [Concomitant]
     Active Substance: FUROSEMIDE
  7. NIVOLUMAB [Suspect]
     Active Substance: NIVOLUMAB
     Indication: METASTATIC MALIGNANT MELANOMA
     Dosage: UNK
     Route: 042
     Dates: start: 20131106, end: 20140226

REACTIONS (4)
  - Hypoxia [Recovered/Resolved with Sequelae]
  - Dyspnoea [Recovered/Resolved with Sequelae]
  - Cough [Recovered/Resolved with Sequelae]
  - Dermatitis exfoliative [Recovered/Resolved with Sequelae]

NARRATIVE: CASE EVENT DATE: 20140321
